FAERS Safety Report 5294361-1 (Version None)
Quarter: 2007Q2

REPORT INFORMATION
  Report Type: 
  Country: None (occurrence: None)
  Receive Date: 20070409
  Receipt Date: 20070409
  Transmission Date: 20071010
  Serious: Yes (Other)
  Sender: FDA-Public Use
  Company Number: None

PATIENT
  Age: 27 Year
  Sex: Female
  Weight: 62.5964 kg

DRUGS (1)
  1. TYLENOL COLD, DAYTIME, COOL BURST TYLENOL [Suspect]
     Indication: NASOPHARYNGITIS
     Dosage: 2 CAPLETS ONCE PO
     Route: 048
     Dates: start: 20070406, end: 20070408

REACTIONS (1)
  - FOOD POISONING [None]
